FAERS Safety Report 8965533 (Version 1)
Quarter: 2012Q4

REPORT INFORMATION
  Report Type: Spontaneous
  Country: US (occurrence: None)
  Receive Date: 20121212
  Receipt Date: 20121212
  Transmission Date: 20130627
  Serious: Yes (Other)
  Sender: FDA-Public Use
  Company Number: None

PATIENT
  Sex: Female

DRUGS (1)
  1. EQUATE CHLORTABS 4 MG. LDK INTNL/WAL-MART STORES INC. [Suspect]
     Dosage: 1/2 tab as needed orally
     Route: 048

REACTIONS (1)
  - Product quality control issue [None]
